FAERS Safety Report 6126194-8 (Version None)
Quarter: 2009Q1

REPORT INFORMATION
  Report Type: 
  Country: None (occurrence: None)
  Receive Date: 20090320
  Receipt Date: 20090312
  Transmission Date: 20090719
  Serious: Yes (Other)
  Sender: FDA-Public Use
  Company Number: B0564609A

PATIENT
  Age: 12 Year
  Sex: Female
  Weight: 40.9 kg

DRUGS (1)
  1. CLENIL MODULITE [Suspect]

REACTIONS (2)
  - RASH GENERALISED [None]
  - RASH PRURITIC [None]
